FAERS Safety Report 9000089 (Version 4)
Quarter: 2013Q2

REPORT INFORMATION
  Report Type: Report from Study
  Country: FR (occurrence: FR)
  Receive Date: 20130102
  Receipt Date: 20130610
  Transmission Date: 20140414
  Serious: Yes (Death, Life-Threatening, Hospitalization)
  Sender: FDA-Public Use
  Company Number: FR-BRISTOL-MYERS SQUIBB COMPANY-17235193

PATIENT
  Age: 62 Year
  Sex: Male
  Weight: 66 kg

DRUGS (6)
  1. CISPLATIN [Suspect]
     Indication: NON-SMALL CELL LUNG CANCER
     Dosage: INF 5?RECENT DOSE 8MAR12
     Dates: start: 20120124, end: 20120308
  2. GEMZAR [Suspect]
     Indication: NON-SMALL CELL LUNG CANCER
     Dosage: INF 6?RECENT DOSE 30MAR12
     Route: 042
     Dates: start: 20120124, end: 20120330
  3. KARDEGIC [Concomitant]
  4. ALDACTAZINE [Concomitant]
  5. TAHOR [Concomitant]
  6. COVERSYL [Concomitant]

REACTIONS (5)
  - Malignant neoplasm progression [Fatal]
  - Hypercreatinaemia [Not Recovered/Not Resolved]
  - Renal failure acute [Not Recovered/Not Resolved]
  - Renal tubular necrosis [Unknown]
  - Pyrexia [Recovered/Resolved]
